FAERS Safety Report 9248817 (Version 1)
Quarter: 2013Q2

REPORT INFORMATION
  Report Type: Spontaneous
  Country: US (occurrence: None)
  Receive Date: 20130419
  Receipt Date: 20130419
  Transmission Date: 20140414
  Serious: Yes (Other)
  Sender: FDA-Public Use
  Company Number: None

PATIENT
  Sex: Male
  Weight: 84.37 kg

DRUGS (1)
  1. LIPITOR 10 MG PITZER US PHARMACY [Suspect]
     Indication: BLOOD CHOLESTEROL INCREASED
     Dates: start: 2004, end: 2009

REACTIONS (5)
  - Muscle spasms [None]
  - Pain in extremity [None]
  - Muscular weakness [None]
  - Amnesia [None]
  - Arthropathy [None]
